FAERS Safety Report 4537424-8 (Version None)
Quarter: 2004Q4

REPORT INFORMATION
  Report Type: 
  Country: None (occurrence: None)
  Receive Date: 20041221
  Receipt Date: 20041214
  Transmission Date: 20050328
  Serious: Yes (Death, Hospitalization)
  Sender: FDA-Public Use
  Company Number: USA-2004-0017697

PATIENT
  Age: 50 Year
  Sex: Female
  Weight: 77.6 kg

DRUGS (19)
  1. SPECTRACEF [Suspect]
     Indication: BRONCHITIS
     Dosage: 200 MG, BID
     Dates: start: 20040504
  2. LASIX [Concomitant]
  3. ALLOPURINOL [Concomitant]
  4. DIOVAN [Concomitant]
  5. PROMETHAZINE [Concomitant]
  6. PREVACID [Concomitant]
  7. HUMULIN (INSULIN ISOPHANE, HUMAN BIOSYNTHETIC, INSULIN HUMAN) [Concomitant]
  8. AMBIEN [Concomitant]
  9. CELEBREX [Concomitant]
  10. REGLAN [Concomitant]
  11. HYDREA [Concomitant]
  12. ATARAX [Concomitant]
  13. METHADONE HCL [Concomitant]
  14. ATROVENT [Concomitant]
  15. ALBUTEROL [Concomitant]
  16. COLCHICINE (COLCHICINE) [Concomitant]
  17. GLYSET (MIGITOL) [Concomitant]
  18. FLEXERIL [Concomitant]
  19. LANTUS (INSULIN OF GLARGINE) [Concomitant]

REACTIONS (4)
  - CLOSTRIDIAL INFECTION [None]
  - CLOSTRIDIUM COLITIS [None]
  - COLITIS [None]
  - GASTROENTERITIS VIRAL [None]
